FAERS Safety Report 5261990-0 (Version None)
Quarter: 2007Q1

REPORT INFORMATION
  Report Type: 
  Country: None (occurrence: None)
  Receive Date: 20070308
  Receipt Date: 20070226
  Transmission Date: 20070707
  Serious: Yes (Other)
  Sender: FDA-Public Use
  Company Number: 2007US-05984

PATIENT
  Age: 61 Year
  Sex: Female

DRUGS (3)
  1. CLINDAMYCIN [Suspect]
     Indication: CARDIAC MURMUR
     Dosage: 600MG (2 CAPSULES OF 300MG)
     Dates: start: 20070222, end: 20070222
  2. ALTACE [Concomitant]
  3. INSULIN INJECTION [Concomitant]

REACTIONS (5)
  - ANOREXIA [None]
  - ERUCTATION [None]
  - HAEMATEMESIS [None]
  - STOMACH DISCOMFORT [None]
  - VOMITING [None]
